FAERS Safety Report 8351229-1 (Version None)
Quarter: 2012Q2

REPORT INFORMATION
  Report Type: 
  Country: None (occurrence: None)
  Receive Date: 20120510
  Receipt Date: 20120507
  Transmission Date: 20120825
  Serious: Yes (Other)
  Sender: FDA-Public Use
  Company Number: KR-PFIZER INC-2012110571

PATIENT
  Sex: Male

DRUGS (6)
  1. SINGULAIR [Concomitant]
  2. ISOSORBIDE DINITRATE [Concomitant]
  3. ASPIRIN [Concomitant]
  4. LYRICA [Suspect]
     Indication: PAIN
     Dosage: 75 MG, 2X/DAY
     Route: 048
     Dates: start: 20111201
  5. TELMISARTAN [Concomitant]
  6. SYMBICORT [Concomitant]

REACTIONS (15)
  - ORAL FUNGAL INFECTION [None]
  - INSOMNIA [None]
  - IMMUNE SYSTEM DISORDER [None]
  - BLOOD PRESSURE INADEQUATELY CONTROLLED [None]
  - EYE DISCHARGE [None]
  - DYSPNOEA [None]
  - ASTHMA [None]
  - APNOEA [None]
  - TREMOR [None]
  - SNORING [None]
  - DECREASED APPETITE [None]
  - TOOTH DISORDER [None]
  - OCULAR HYPERAEMIA [None]
  - DIZZINESS [None]
  - WEIGHT DECREASED [None]
